FAERS Safety Report 11897204 (Version 2)
Quarter: 2016Q1

REPORT INFORMATION
  Report Type: Spontaneous
  Country: US (occurrence: US)
  Receive Date: 20160108
  Receipt Date: 20160115
  Transmission Date: 20160526
  Serious: Yes (Other)
  Sender: FDA-Public Use
  Company Number: US-AMGEN-USASL2016000131

PATIENT
  Age: 79 Year
  Sex: Female
  Weight: 63.39 kg

DRUGS (1)
  1. REPATHA [Suspect]
     Active Substance: EVOLOCUMAB
     Indication: PRODUCT USED FOR UNKNOWN INDICATION
     Dosage: 140 MG, Q2WK
     Route: 058
     Dates: start: 20151216

REACTIONS (7)
  - Rectal haemorrhage [Recovered/Resolved]
  - Eructation [Recovered/Resolved]
  - Nausea [Recovered/Resolved]
  - Regurgitation [Not Recovered/Not Resolved]
  - Flatulence [Recovered/Resolved]
  - Breast pain [Recovered/Resolved]
  - Myalgia [Unknown]

NARRATIVE: CASE EVENT DATE: 201512
